FAERS Safety Report 21028384 (Version 2)
Quarter: 2022Q3

REPORT INFORMATION
  Report Type: Spontaneous
  Country: NL (occurrence: NL)
  Receive Date: 20220630
  Receipt Date: 20220715
  Transmission Date: 20221026
  Serious: Yes (Hospitalization)
  Sender: FDA-Public Use
  Company Number: NL-TEVA-2022-NL-2049785

PATIENT
  Age: 1 Day
  Sex: Male

DRUGS (8)
  1. OCTREOTIDE [Suspect]
     Active Substance: OCTREOTIDE
     Indication: Hyperinsulinism
     Dosage: 15 UG/KG DAILY; MAXIMUM DOSE 15 UG/KG/DAY
     Route: 042
  2. DEXTROSE [Suspect]
     Active Substance: DEXTROSE
     Indication: Hyperinsulinism
     Route: 040
  3. DIAZOXIDE [Suspect]
     Active Substance: DIAZOXIDE
     Indication: Hyperinsulinism
     Dosage: 20 MG/KG DAILY; MAXIMUM DOSE 20MG/KG/DAY
     Route: 048
  4. GLUCAGON [Suspect]
     Active Substance: GLUCAGON
     Indication: Hyperinsulinism
     Dosage: GLUCAGON INFUSION
     Route: 058
  5. GLUCAGON [Suspect]
     Active Substance: GLUCAGON
     Dosage: INITIALLY, HE RECEIVED SC GLUCAGON BUT IT CHANGED TO IV GLUCAGON AT A MAXIMUM DOSE OF 20 UG/KG/HO...
     Route: 041
  6. LANREOTIDE [Suspect]
     Active Substance: LANREOTIDE
     Indication: Hyperinsulinism
     Dosage: SC LANREOTIDE 60MG EVERY 4 WEEKS
     Route: 058
  7. PASIREOTIDE [Suspect]
     Active Substance: PASIREOTIDE
     Indication: Hyperinsulinism
     Dosage: .3 MILLIGRAM DAILY;
     Route: 058
  8. PASIREOTIDE [Suspect]
     Active Substance: PASIREOTIDE
     Dosage: 1.2 MILLIGRAM DAILY; PASIREOTIDE INJECTIONS WERE INCREASED TO 4TIMES DAILY AT 0.3MG TO AVOID HYPOGLY
     Route: 058

REACTIONS (3)
  - Blood glucose fluctuation [Recovering/Resolving]
  - Hyperglycaemia [Recovering/Resolving]
  - Drug ineffective [Unknown]
